FAERS Safety Report 24455351 (Version 2)
Quarter: 2024Q4

REPORT INFORMATION
  Report Type: Spontaneous
  Country: CN (occurrence: CN)
  Receive Date: 20241017
  Receipt Date: 20241018
  Transmission Date: 20250114
  Serious: No
  Sender: ROCHE
  Company Number: CN-ROCHE-3489276

PATIENT
  Age: 59 Year
  Sex: Female

DRUGS (11)
  1. MABTHERA [Suspect]
     Active Substance: RITUXIMAB
     Indication: Diffuse large B-cell lymphoma
     Dosage: ZR-CHOP
     Route: 041
  2. MABTHERA [Suspect]
     Active Substance: RITUXIMAB
     Dosage: R-CHOP+Z+HD-MTX
     Route: 041
  3. MABTHERA [Suspect]
     Active Substance: RITUXIMAB
     Dosage: POLA+R-CHP+IBRUTINIB, POLATUZUMAB VEDOTIN + RITUXIMAB + IBRUTINIB + HD-MTX
     Route: 041
  4. POLIVY [Suspect]
     Active Substance: POLATUZUMAB VEDOTIN-PIIQ
     Indication: Diffuse large B-cell lymphoma
     Dosage: POLA+R-CHP+IBRUTINIB,POLATUZUMAB VEDOTIN + RITUXIMAB + IBRUTINIB + HD-MTX
     Route: 065
  5. VINDESINE [Concomitant]
     Active Substance: VINDESINE
     Indication: Diffuse large B-cell lymphoma
     Dosage: ZR-CHOP,REDUCE CHOP+Z, CHOP+Z+HD-MTX, R-CHOP+Z+HD-MTX
  6. PIRARUBICIN [Concomitant]
     Active Substance: PIRARUBICIN
     Indication: Diffuse large B-cell lymphoma
     Dosage: ZR-CHOP, REDUCE CHOP+Z, CHOP+Z+HD-MTX, R-CHOP+Z+HD-MTX, POLA+R-CHP+IBRUTINIB
  7. CYCLOPHOSPHAMIDE [Concomitant]
     Active Substance: CYCLOPHOSPHAMIDE
     Indication: Diffuse large B-cell lymphoma
     Dosage: ZR-CHOP, REDUCE CHOP+Z, CHOP+Z+HD-MTX, R-CHOP+Z+HD-MTX, POLA+R-CHP+IBRUTINIB
  8. ZANUBRUTINIB [Concomitant]
     Active Substance: ZANUBRUTINIB
     Indication: Diffuse large B-cell lymphoma
     Dosage: ZR-CHOP, REDUCE CHOP+Z, CHOP+Z+HD-MTX
  9. METHOTREXATE [Concomitant]
     Active Substance: METHOTREXATE
     Indication: Diffuse large B-cell lymphoma
     Dosage: CHOP+Z+HD-MTX. 3G/M2, R-CHOP+Z+HD-MTX, POLA+R+IBRUTINIB+HD-MTX
  10. IBRUTINIB [Concomitant]
     Active Substance: IBRUTINIB
     Indication: Diffuse large B-cell lymphoma
     Dosage: POLA+R-CHP+IBRUTINIB,POLATUZUMAB VEDOTIN + RITUXIMAB + IBRUTINIB + HD-MTX
  11. PREDNISONE [Concomitant]
     Active Substance: PREDNISONE
     Indication: Diffuse large B-cell lymphoma
     Dosage: ZR-CHOP,REDUCE CHOP+Z, CHOP+Z+HD-MTX, R-CHOP+Z+HD-MTX, POLA+R-CHP+IBRUTINIB

REACTIONS (1)
  - Infusion related reaction [Unknown]
